FAERS Safety Report 16229131 (Version 1)
Quarter: 2019Q2

REPORT INFORMATION
  Report Type: Spontaneous
  Country: GB (occurrence: GB)
  Receive Date: 20190423
  Receipt Date: 20190423
  Transmission Date: 20190711
  Serious: Yes (Other)
  Sender: FDA-Public Use
  Company Number: GB-PFIZER INC-2019166028

PATIENT
  Age: 71 Year
  Sex: Male

DRUGS (4)
  1. LORAZEPAM. [Suspect]
     Active Substance: LORAZEPAM
     Dosage: 1 UNK, 4X/DAY (EVERY 6HOURS)
     Route: 065
  2. SERTRALINE HCL [Suspect]
     Active Substance: SERTRALINE HYDROCHLORIDE
     Dosage: UNK
     Route: 065
  3. CLOPIXOL (DECANOATE) [Suspect]
     Active Substance: ZUCLOPENTHIXOL DECANOATE
     Dosage: 200 MG, UNK (EVERY 2 WEEKS)
     Route: 065
  4. CLOPIXOL (DECANOATE) [Suspect]
     Active Substance: ZUCLOPENTHIXOL DECANOATE
     Dosage: 500 MG, UNK
     Route: 065

REACTIONS (14)
  - Mental disorder [Unknown]
  - Seizure [Unknown]
  - Hip fracture [Unknown]
  - Feeling abnormal [Unknown]
  - Lower limb fracture [Unknown]
  - Eye movement disorder [Unknown]
  - Muscular weakness [Unknown]
  - Movement disorder [Unknown]
  - Central nervous system lesion [Unknown]
  - Drug intolerance [Unknown]
  - Skull fracture [Unknown]
  - Gait disturbance [Unknown]
  - Malaise [Unknown]
  - Condition aggravated [Unknown]
